FAERS Safety Report 25162694 (Version 1)
Quarter: 2025Q2

REPORT INFORMATION
  Report Type: Spontaneous
  Country: FR (occurrence: FR)
  Receive Date: 20250404
  Receipt Date: 20250404
  Transmission Date: 20250717
  Serious: Yes (Life-Threatening, Hospitalization)
  Sender: MYLAN
  Company Number: None

PATIENT
  Age: 78 Year
  Sex: Female
  Weight: 56 kg

DRUGS (20)
  1. TAHOR [Suspect]
     Active Substance: ATORVASTATIN CALCIUM
     Indication: Myocardial ischaemia
     Dosage: 80 MILLIGRAM, QD
     Dates: start: 20241216
  2. TAHOR [Suspect]
     Active Substance: ATORVASTATIN CALCIUM
     Dosage: 80 MILLIGRAM, QD
     Route: 048
     Dates: start: 20241216
  3. TAHOR [Suspect]
     Active Substance: ATORVASTATIN CALCIUM
     Dosage: 80 MILLIGRAM, QD
     Route: 048
     Dates: start: 20241216
  4. TAHOR [Suspect]
     Active Substance: ATORVASTATIN CALCIUM
     Dosage: 80 MILLIGRAM, QD
     Dates: start: 20241216
  5. BISOPROLOL [Suspect]
     Active Substance: BISOPROLOL
     Indication: Myocardial ischaemia
     Dosage: 2.5 MILLIGRAM, QD
     Dates: start: 20241216
  6. BISOPROLOL [Suspect]
     Active Substance: BISOPROLOL
     Dosage: 2.5 MILLIGRAM, QD
     Route: 048
     Dates: start: 20241216
  7. BISOPROLOL [Suspect]
     Active Substance: BISOPROLOL
     Dosage: 2.5 MILLIGRAM, QD
     Route: 048
     Dates: start: 20241216
  8. BISOPROLOL [Suspect]
     Active Substance: BISOPROLOL
     Dosage: 2.5 MILLIGRAM, QD
     Dates: start: 20241216
  9. KARDEGIC [Suspect]
     Active Substance: ASPIRIN DL-LYSINE
     Indication: Myocardial ischaemia
     Dosage: 75 MILLIGRAM, QD (POWDER FOR ORAL SOLUTION IN SACHET DOSE)
     Dates: start: 20241216
  10. KARDEGIC [Suspect]
     Active Substance: ASPIRIN DL-LYSINE
     Dosage: 75 MILLIGRAM, QD (POWDER FOR ORAL SOLUTION IN SACHET DOSE)
     Route: 048
     Dates: start: 20241216
  11. KARDEGIC [Suspect]
     Active Substance: ASPIRIN DL-LYSINE
     Dosage: 75 MILLIGRAM, QD (POWDER FOR ORAL SOLUTION IN SACHET DOSE)
     Route: 048
     Dates: start: 20241216
  12. KARDEGIC [Suspect]
     Active Substance: ASPIRIN DL-LYSINE
     Dosage: 75 MILLIGRAM, QD (POWDER FOR ORAL SOLUTION IN SACHET DOSE)
     Dates: start: 20241216
  13. CETIRIZINE [Suspect]
     Active Substance: CETIRIZINE HYDROCHLORIDE
     Indication: Product used for unknown indication
  14. CETIRIZINE [Suspect]
     Active Substance: CETIRIZINE HYDROCHLORIDE
     Route: 048
  15. CETIRIZINE [Suspect]
     Active Substance: CETIRIZINE HYDROCHLORIDE
     Route: 048
  16. CETIRIZINE [Suspect]
     Active Substance: CETIRIZINE HYDROCHLORIDE
  17. TICAGRELOR [Concomitant]
     Active Substance: TICAGRELOR
     Indication: Myocardial ischaemia
     Dosage: 90 MILLIGRAM, BID (180 MG, QD)
     Dates: start: 20241216, end: 20250317
  18. TICAGRELOR [Concomitant]
     Active Substance: TICAGRELOR
     Dosage: 90 MILLIGRAM, BID (180 MG, QD)
     Route: 048
     Dates: start: 20241216, end: 20250317
  19. TICAGRELOR [Concomitant]
     Active Substance: TICAGRELOR
     Dosage: 90 MILLIGRAM, BID (180 MG, QD)
     Route: 048
     Dates: start: 20241216, end: 20250317
  20. TICAGRELOR [Concomitant]
     Active Substance: TICAGRELOR
     Dosage: 90 MILLIGRAM, BID (180 MG, QD)
     Dates: start: 20241216, end: 20250317

REACTIONS (2)
  - Agranulocytosis [Not Recovered/Not Resolved]
  - Cholestatic liver injury [Not Recovered/Not Resolved]

NARRATIVE: CASE EVENT DATE: 20250201
